FAERS Safety Report 16682110 (Version 1)
Quarter: 2019Q3

REPORT INFORMATION
  Report Type: Spontaneous
  Country: US (occurrence: US)
  Receive Date: 20190624
  Receipt Date: 20190624
  Transmission Date: 20191004
  Serious: Yes (Other)
  Sender: FDA-Public Use
  Company Number: None

PATIENT
  Age: 37 Year
  Sex: Female
  Weight: 54.88 kg

DRUGS (1)
  1. GADAVIST [Suspect]
     Active Substance: GADOBUTROL
     Indication: BREAST TENDERNESS
     Dosage: ?          OTHER FREQUENCY:2ML/SEC FOR 5 SEC;?
     Route: 040
     Dates: start: 20190624

REACTIONS (3)
  - Pruritus [None]
  - Lip swelling [None]
  - Erythema [None]

NARRATIVE: CASE EVENT DATE: 20190624
